FAERS Safety Report 25049539 (Version 2)
Quarter: 2025Q2

REPORT INFORMATION
  Report Type: Spontaneous
  Country: US (occurrence: US)
  Receive Date: 20250307
  Receipt Date: 20250411
  Transmission Date: 20250717
  Serious: Yes (Hospitalization)
  Sender: BRISTOL MYERS SQUIBB
  Company Number: US-BRISTOL-MYERS SQUIBB COMPANY-2025-033626

PATIENT
  Age: 17 Year
  Sex: Male

DRUGS (10)
  1. IDHIFA [Suspect]
     Active Substance: ENASIDENIB MESYLATE
     Indication: 2-Hydroxyglutaric aciduria
     Route: 048
  2. IDHIFA [Suspect]
     Active Substance: ENASIDENIB MESYLATE
     Dosage: THERAPY START DATE: 07-MAR-2025
     Route: 048
     Dates: end: 20250313
  3. CLOBAZAM [Concomitant]
     Active Substance: CLOBAZAM
     Indication: Product used for unknown indication
     Dosage: TID
     Dates: start: 202308
  4. PEPCID [Concomitant]
     Active Substance: FAMOTIDINE
     Indication: Product used for unknown indication
     Dosage: BID
     Dates: start: 202410
  5. CARNITOR [Concomitant]
     Active Substance: LEVOCARNITINE
     Indication: Product used for unknown indication
     Dosage: BID
     Dates: start: 202207
  6. COZAAR [Concomitant]
     Active Substance: LOSARTAN POTASSIUM
     Indication: Product used for unknown indication
     Dosage: QD
     Dates: start: 202408
  7. MAGNESIUM OXIDE [Concomitant]
     Active Substance: MAGNESIUM OXIDE
     Indication: Product used for unknown indication
     Dosage: QD
     Dates: start: 202407
  8. PERAMPANEL [Concomitant]
     Active Substance: PERAMPANEL
     Indication: Product used for unknown indication
     Dosage: QD
     Dates: start: 202308
  9. RIBOFLAVIN [Concomitant]
     Active Substance: RIBOFLAVIN
     Indication: Product used for unknown indication
     Dosage: QD
     Dates: start: 202304
  10. RIFAXIMIN [Concomitant]
     Active Substance: RIFAXIMIN
     Indication: Product used for unknown indication
     Dosage: QD
     Dates: start: 202408

REACTIONS (8)
  - Urinary tract infection [Recovered/Resolved]
  - Gait disturbance [Unknown]
  - Muscular weakness [Unknown]
  - Dizziness [Recovered/Resolved]
  - Mood altered [Unknown]
  - Agitation [Unknown]
  - Off label use [Unknown]
  - Muscle fatigue [Recovered/Resolved]

NARRATIVE: CASE EVENT DATE: 20250216
